FAERS Safety Report 10027984 (Version 3)
Quarter: 2014Q3

REPORT INFORMATION
  Report Type: Report from Study
  Country: JP (occurrence: JP)
  Receive Date: 20140321
  Receipt Date: 20140716
  Transmission Date: 20150326
  Serious: Yes (Hospitalization)
  Sender: FDA-Public Use
  Company Number: JP-SA-2014SA033701

PATIENT
  Age: 19 Year
  Sex: Male
  Weight: 46.4 kg

DRUGS (16)
  1. SOL-MELCORT [Suspect]
     Active Substance: METHYLPREDNISOLONE SODIUM SUCCINATE
     Indication: ACUTE GRAFT VERSUS HOST DISEASE
     Route: 065
     Dates: start: 20130709, end: 20130718
  2. SOLU-CORTEF [Concomitant]
     Active Substance: HYDROCORTISONE SODIUM SUCCINATE
     Indication: PROPHYLAXIS
     Dates: start: 20130613, end: 20130614
  3. VICCLOX [Concomitant]
     Active Substance: ACYCLOVIR SODIUM
     Indication: ANTIVIRAL PROPHYLAXIS
     Dates: start: 20130618, end: 20130705
  4. HEPARIN SODIUM. [Concomitant]
     Active Substance: HEPARIN SODIUM
     Indication: PROPHYLAXIS
     Dates: start: 20130613, end: 20130720
  5. FOSCAVIR [Suspect]
     Active Substance: FOSCARNET SODIUM
     Indication: CYTOMEGALOVIRUS INFECTION
     Route: 065
     Dates: start: 20130713, end: 20130725
  6. POLARAMINE [Concomitant]
     Active Substance: DEXCHLORPHENIRAMINE MALEATE
     Indication: PROPHYLAXIS
     Dates: start: 20130613, end: 20130614
  7. ITRIZOLE [Concomitant]
     Active Substance: ITRACONAZOLE
     Indication: ANTIFUNGAL PROPHYLAXIS
     Route: 048
     Dates: start: 20130613, end: 20130924
  8. PROGRAF [Suspect]
     Active Substance: TACROLIMUS\TACROLIMUS ANHYDROUS
     Indication: PROPHYLAXIS AGAINST GRAFT VERSUS HOST DISEASE
     Route: 065
     Dates: start: 20130620, end: 20140106
  9. DEXART [Concomitant]
     Active Substance: DEXAMETHASONE SODIUM PHOSPHATE
     Indication: HISTIOCYTOSIS HAEMATOPHAGIC
     Dates: start: 20130613, end: 20130621
  10. BENAMBAX [Concomitant]
     Active Substance: PENTAMIDINE
     Indication: ANTIFUNGAL PROPHYLAXIS
     Dates: start: 20130620, end: 20130816
  11. FLUDARA [Suspect]
     Active Substance: FLUDARABINE PHOSPHATE
     Indication: HISTIOCYTOSIS HAEMATOPHAGIC
     Route: 065
     Dates: start: 20130615, end: 20130619
  12. POLAPREZINC [Concomitant]
     Indication: CHRONIC GASTRITIS
     Dates: start: 20130613, end: 20131105
  13. ALKERAN [Suspect]
     Active Substance: MELPHALAN
     Indication: HISTIOCYTOSIS HAEMATOPHAGIC
     Route: 065
     Dates: start: 20130618, end: 20130619
  14. THYMOGLOBULINE [Suspect]
     Active Substance: LAPINE T-LYMPHOCYTE IMMUNE GLOBULIN
     Indication: BONE MARROW CONDITIONING REGIMEN
     Route: 042
     Dates: start: 20130613, end: 20130614
  15. METHOTREXATE [Suspect]
     Active Substance: METHOTREXATE
     Indication: PROPHYLAXIS AGAINST GRAFT VERSUS HOST DISEASE
     Route: 065
     Dates: start: 20130622, end: 20130702
  16. MEDROL [Suspect]
     Active Substance: METHYLPREDNISOLONE
     Indication: ACUTE GRAFT VERSUS HOST DISEASE
     Route: 065
     Dates: start: 20130719, end: 20130730

REACTIONS (8)
  - Cytomegalovirus infection [Recovered/Resolved]
  - Hypomagnesaemia [Recovered/Resolved]
  - Diabetes mellitus [Recovered/Resolved]
  - Febrile neutropenia [Recovered/Resolved]
  - Neutropenia [Recovered/Resolved]
  - Diarrhoea [Recovered/Resolved]
  - Acute graft versus host disease [Recovered/Resolved]
  - Hypogammaglobulinaemia [Recovered/Resolved]

NARRATIVE: CASE EVENT DATE: 20130614
